FAERS Safety Report 17439958 (Version 1)
Quarter: 2020Q1

REPORT INFORMATION
  Report Type: Spontaneous
  Country: US (occurrence: US)
  Receive Date: 20200218
  Receipt Date: 20200218
  Transmission Date: 20200409
  Serious: No
  Sender: FDA-Public Use
  Company Number: None

PATIENT
  Age: 62 Year
  Sex: Male

DRUGS (2)
  1. HEPARIN (HEPARIN NA 5000 UNT/ML SYRINGE, 1ML) [Suspect]
     Active Substance: HEPARIN SODIUM
     Indication: ATRIAL FIBRILLATION
     Route: 058
     Dates: start: 20200206, end: 20200213
  2. HEPARIN (HEPARIN NA 5000 UNT/ML SYRINGE, 1ML) [Suspect]
     Active Substance: HEPARIN SODIUM
     Indication: PROPHYLAXIS

REACTIONS (2)
  - Heparin-induced thrombocytopenia [None]
  - Thrombocytopenia [None]

NARRATIVE: CASE EVENT DATE: 20200209
